FAERS Safety Report 23518442 (Version 1)
Quarter: 2024Q1

REPORT INFORMATION
  Report Type: Spontaneous
  Country: IN (occurrence: IN)
  Receive Date: 20240213
  Receipt Date: 20240213
  Transmission Date: 20240410
  Serious: Yes (Other)
  Sender: FDA-Public Use
  Company Number: IN-ALKEM LABORATORIES LIMITED-IN-ALKEM-2024-02710

PATIENT
  Age: 18 Year
  Sex: Male

DRUGS (1)
  1. TRIAMCINOLONE ACETONIDE [Suspect]
     Active Substance: TRIAMCINOLONE ACETONIDE
     Indication: Lichen planus
     Dosage: 5 MILLIGRAM PER MILLILITRE (INTRAMATRICIAL INJECTION)
     Route: 065

REACTIONS (1)
  - Embolia cutis medicamentosa [Recovered/Resolved]
